FAERS Safety Report 13555769 (Version 1)
Quarter: 2017Q2

REPORT INFORMATION
  Report Type: Report from Study
  Country: DE (occurrence: DE)
  Receive Date: 20170517
  Receipt Date: 20170517
  Transmission Date: 20170830
  Serious: Yes (Hospitalization)
  Sender: FDA-Public Use
  Company Number: DE-SEATTLE GENETICS-2017SGN00955

PATIENT

DRUGS (24)
  1. DEXAMETHASONE. [Suspect]
     Active Substance: DEXAMETHASONE
     Indication: HODGKIN^S DISEASE
     Dosage: UNK
     Route: 065
  2. ENOXAPARIN [Concomitant]
     Active Substance: ENOXAPARIN
     Dosage: 0.4 ML, UNK
     Route: 065
     Dates: start: 20170324, end: 20170331
  3. DOXORUBICIN [Suspect]
     Active Substance: DOXORUBICIN
     Indication: HODGKIN^S DISEASE
     Dosage: UNK
     Route: 065
  4. CYCLOPHOSPHAMIDE. [Suspect]
     Active Substance: CYCLOPHOSPHAMIDE
     Indication: HODGKIN^S DISEASE
     Dosage: UNK
     Route: 065
  5. PARACETAMOL [Concomitant]
     Active Substance: ACETAMINOPHEN
     Dosage: UNK
     Route: 065
     Dates: start: 20170328, end: 20170328
  6. CIPROBAY                           /00697201/ [Concomitant]
     Active Substance: CIPROFLOXACIN
     Dosage: 1000 MG, UNK
     Route: 065
     Dates: start: 20170404, end: 20170404
  7. OXAZEPAM. [Concomitant]
     Active Substance: OXAZEPAM
     Dosage: 10 MG, UNK
     Route: 065
     Dates: start: 20170327, end: 20170327
  8. APREPITANT. [Concomitant]
     Active Substance: APREPITANT
     Dosage: 125 MG, UNK
     Route: 065
     Dates: start: 20170329
  9. APREPITANT. [Concomitant]
     Active Substance: APREPITANT
     Dosage: 80 MG, UNK
     Route: 065
     Dates: start: 20170329, end: 20170331
  10. ACICLOVIR [Concomitant]
     Active Substance: ACYCLOVIR
     Dosage: 800 MG, UNK
     Route: 065
     Dates: start: 20170402, end: 20170404
  11. PANTOPRAZOLE [Concomitant]
     Active Substance: PANTOPRAZOLE
     Dosage: 40 MG, UNK
     Route: 065
     Dates: start: 20170404, end: 20170404
  12. NATRIUM HYDROGENCARBONATE [Concomitant]
     Dosage: 3 G, UNK
     Route: 065
     Dates: start: 20170329, end: 20170401
  13. HESNA [Concomitant]
     Dosage: 750 MG, UNK
     Route: 065
     Dates: start: 20170329, end: 20170329
  14. ETOPOSIDE. [Suspect]
     Active Substance: ETOPOSIDE
     Indication: HODGKIN^S DISEASE
     Dosage: UNK
     Route: 065
  15. COTRIMOXAZOLE [Concomitant]
     Active Substance: SULFAMETHOXAZOLE\TRIMETHOPRIM
     Dosage: 960 MG, 3/WEEK
     Route: 065
     Dates: start: 20170329, end: 20170403
  16. ONDANSETRON [Concomitant]
     Active Substance: ONDANSETRON
     Dosage: 4 MG, UNK
     Route: 065
     Dates: start: 20170329
  17. GRANISETRON [Concomitant]
     Active Substance: GRANISETRON
     Dosage: 1 MG, UNK
     Route: 065
     Dates: start: 20170329, end: 20170329
  18. OXYCODON [Concomitant]
     Active Substance: OXYCODONE
     Dosage: 10 MG, UNK
     Route: 065
     Dates: start: 20170326, end: 20170326
  19. BRENTUXIMAB VEDOTIN [Suspect]
     Active Substance: BRENTUXIMAB VEDOTIN
     Indication: HODGKIN^S DISEASE
     Route: 065
  20. DIMETINDENE [Concomitant]
     Active Substance: DIMETHINDENE
     Dosage: 4 MG, UNK
     Route: 065
     Dates: start: 20170328, end: 20170328
  21. DIMENHYDRINAT [Concomitant]
     Active Substance: DIMENHYDRINATE
     Dosage: UNK
     Route: 065
     Dates: start: 20170329, end: 20170330
  22. DACARBAZINE. [Suspect]
     Active Substance: DACARBAZINE
     Indication: HODGKIN^S DISEASE
     Dosage: UNK
     Route: 065
  23. ALLOPURINOL. [Concomitant]
     Active Substance: ALLOPURINOL
     Dosage: 300 MG, UNK
     Route: 065
     Dates: start: 20170327, end: 20170404
  24. PEGFILGRASTIM [Concomitant]
     Active Substance: PEGFILGRASTIM
     Dosage: 4 MG, UNK
     Route: 065
     Dates: start: 20170401, end: 20170401

REACTIONS (3)
  - Febrile neutropenia [Recovered/Resolved]
  - Clostridium difficile infection [Recovered/Resolved]
  - Colitis [Recovered/Resolved]

NARRATIVE: CASE EVENT DATE: 20170405
